FAERS Safety Report 12227112 (Version 2)
Quarter: 2016Q2

REPORT INFORMATION
  Report Type: Spontaneous
  Country: US (occurrence: US)
  Receive Date: 20160331
  Receipt Date: 20160428
  Transmission Date: 20160815
  Serious: Yes (Death, Hospitalization, Other)
  Sender: FDA-Public Use
  Company Number: US-LUNDBECK-DKLU2011704

PATIENT
  Age: 75 Year
  Sex: Male

DRUGS (1)
  1. NORTHERA [Suspect]
     Active Substance: DROXIDOPA
     Indication: ORTHOSTATIC HYPOTENSION
     Dosage: LAST DOSE 4 HOURS BEFORE HS
     Route: 048
     Dates: end: 20160316

REACTIONS (5)
  - Traumatic intracranial haemorrhage [Unknown]
  - Urinary tract infection [Unknown]
  - Fall [Unknown]
  - Aspiration [Fatal]
  - Confusional state [Unknown]

NARRATIVE: CASE EVENT DATE: 201601
